FAERS Safety Report 15967532 (Version 1)
Quarter: 2019Q1

REPORT INFORMATION
  Report Type: Spontaneous
  Country: US (occurrence: US)
  Receive Date: 20190124
  Receipt Date: 20190124
  Transmission Date: 20190418
  Serious: No
  Sender: FDA-Public Use
  Company Number: None

PATIENT
  Age: 64 Year
  Sex: Male
  Weight: 92.99 kg

DRUGS (1)
  1. HARVONI [Suspect]
     Active Substance: LEDIPASVIR\SOFOSBUVIR
     Indication: HEPATITIS C
     Dosage: ?          QUANTITY:ONE PILL DAILY;OTHER FREQUENCY:AT 5:30PM;?
     Route: 048
     Dates: start: 201810, end: 20190106

REACTIONS (4)
  - Anxiety [None]
  - Headache [None]
  - Irritability [None]
  - Drug abuser [None]
